FAERS Safety Report 6604505-4 (Version None)
Quarter: 2010Q1

REPORT INFORMATION
  Report Type: 
  Country: None (occurrence: None)
  Receive Date: 20100226
  Receipt Date: 20091204
  Transmission Date: 20100710
  Serious: No
  Sender: FDA-Public Use
  Company Number: A0815132A

PATIENT
  Sex: Female

DRUGS (2)
  1. LAMICTAL CD [Suspect]
     Dosage: 200MG TWICE PER DAY
     Route: 048
  2. LAMICTAL CD [Suspect]
     Dosage: 200MG UNKNOWN
     Route: 048

REACTIONS (4)
  - DYSGEUSIA [None]
  - NAIL INJURY [None]
  - PRODUCT QUALITY ISSUE [None]
  - SKIN LACERATION [None]
